FAERS Safety Report 6193312-5 (Version None)
Quarter: 2009Q2

REPORT INFORMATION
  Report Type: 
  Country: None (occurrence: None)
  Receive Date: 20090518
  Receipt Date: 20090507
  Transmission Date: 20091009
  Serious: Yes (Other)
  Sender: FDA-Public Use
  Company Number: PHHY2009JP08117

PATIENT
  Age: 32 Year
  Sex: Female
  Weight: 48.8 kg

DRUGS (1)
  1. METOPIRONE [Suspect]
     Indication: PITUITARY-DEPENDENT CUSHING'S SYNDROME

REACTIONS (5)
  - HEADACHE [None]
  - HYPOPHYSECTOMY [None]
  - NAUSEA [None]
  - PITUITARY HAEMORRHAGE [None]
  - PITUITARY TUMOUR [None]
